FAERS Safety Report 17290994 (Version 1)
Quarter: 2020Q1

REPORT INFORMATION
  Report Type: Report from Study
  Country: US (occurrence: US)
  Receive Date: 20200121
  Receipt Date: 20200121
  Transmission Date: 20200409
  Serious: Yes (Hospitalization, Other)
  Sender: FDA-Public Use
  Company Number: US-BAYER-2019-207869

PATIENT
  Age: 59 Year
  Sex: Male

DRUGS (2)
  1. LENVIMA [Suspect]
     Active Substance: LENVATINIB
     Indication: HEPATOCELLULAR CARCINOMA
     Dosage: DAILY DOSE 12 MG
     Route: 048
     Dates: end: 20191021
  2. NEXAVAR [Suspect]
     Active Substance: SORAFENIB
     Indication: HEPATOCELLULAR CARCINOMA
     Dosage: 400 MG, BID
     Dates: start: 20191030

REACTIONS (6)
  - Abdominal pain upper [None]
  - Productive cough [Unknown]
  - Fatigue [Unknown]
  - Chest tube insertion [Unknown]
  - Dyspnoea [Unknown]
  - Lung disorder [Unknown]
